FAERS Safety Report 15207791 (Version 1)
Quarter: 2018Q3

REPORT INFORMATION
  Report Type: Spontaneous
  Country: US (occurrence: US)
  Receive Date: 20180727
  Receipt Date: 20180727
  Transmission Date: 20181010
  Serious: No
  Sender: FDA-Public Use
  Company Number: US-ALLERGAN-1803810US

PATIENT
  Sex: Male

DRUGS (2)
  1. ANDRODERM [Suspect]
     Active Substance: TESTOSTERONE
     Indication: ANDROGEN REPLACEMENT THERAPY
     Dosage: UNK
     Route: 062
  2. ANDRODERM [Suspect]
     Active Substance: TESTOSTERONE
     Dosage: 1 PATCH APPLED EVERY 24 HOURS IN NIGHT
     Route: 062

REACTIONS (5)
  - Off label use [Unknown]
  - Product quality issue [Unknown]
  - Erythema [Recovered/Resolved]
  - Drug ineffective [Unknown]
  - Product adhesion issue [Unknown]
